FAERS Safety Report 8814952 (Version 2)
Quarter: 2012Q4

REPORT INFORMATION
  Report Type: 
  Country: IT (occurrence: IT)
  Receive Date: 20120928
  Receipt Date: 20121231
  Transmission Date: 20130627
  Serious: Yes (Hospitalization)
  Sender: FDA-Public Use
  Company Number: IT-ABBOTT-12P-083-0981538-00

PATIENT
  Age: 41 Year
  Sex: Male

DRUGS (3)
  1. HUMIRA [Suspect]
     Route: 058
     Dates: start: 20050101, end: 20120601
  2. METHOTREXATE [Suspect]
     Indication: RHEUMATOID ARTHRITIS
     Route: 030
     Dates: start: 20090101, end: 20120601
  3. DELTACORTENE [Suspect]
     Indication: RHEUMATOID ARTHRITIS
     Route: 048
     Dates: start: 19990101, end: 20120601

REACTIONS (4)
  - Cholangitis [Recovered/Resolved]
  - Liver abscess [Recovered/Resolved]
  - Portal vein phlebitis [Unknown]
  - Portal vein thrombosis [Recovered/Resolved]
